FAERS Safety Report 20078155 (Version 6)
Quarter: 2024Q2

REPORT INFORMATION
  Report Type: Report from Study
  Country: US (occurrence: US)
  Receive Date: 20211117
  Receipt Date: 20240527
  Transmission Date: 20240716
  Serious: No
  Sender: FDA-Public Use
  Company Number: US-NOVARTISTESTPH-NVSC2021US261082

PATIENT
  Sex: Female

DRUGS (3)
  1. COSENTYX [Suspect]
     Active Substance: SECUKINUMAB
     Indication: Psoriatic arthropathy
     Dosage: UNK
     Route: 065
  2. COSENTYX [Suspect]
     Active Substance: SECUKINUMAB
     Dosage: 150 MG, QW (ONCE EVERY TWO WEEKS)(BENEATH THE SKIN,USUALLY VIA INJECTION)
     Route: 058
  3. COSENTYX [Suspect]
     Active Substance: SECUKINUMAB
     Dosage: 300 MG, QMO (EVERY 2 WEEKS, TOTAL OF 300 MG PER MONTH)
     Route: 058

REACTIONS (7)
  - Discomfort [Unknown]
  - Injection site pain [Unknown]
  - Pain [Unknown]
  - Movement disorder [Unknown]
  - Product dose omission issue [Unknown]
  - Drug ineffective [Unknown]
  - Bone pain [Unknown]
